FAERS Safety Report 7540188-7 (Version None)
Quarter: 2011Q2

REPORT INFORMATION
  Report Type: 
  Country: None (occurrence: None)
  Receive Date: 20110610
  Receipt Date: 20110530
  Transmission Date: 20111010
  Serious: Yes (Other)
  Sender: FDA-Public Use
  Company Number: AU-JNJFOC-20110505927

PATIENT
  Sex: Male

DRUGS (2)
  1. STELARA [Suspect]
     Indication: ILL-DEFINED DISORDER
     Route: 058
  2. METHOTREXATE [Concomitant]
     Indication: PSORIATIC ARTHROPATHY

REACTIONS (1)
  - SQUAMOUS CELL CARCINOMA [None]
